FAERS Safety Report 23748655 (Version 2)
Quarter: 2024Q2

REPORT INFORMATION
  Report Type: Spontaneous
  Country: FR (occurrence: FR)
  Receive Date: 20240416
  Receipt Date: 20240506
  Transmission Date: 20240716
  Serious: Yes (Death, Other)
  Sender: FDA-Public Use
  Company Number: FR-SANDOZ-SDZ2024FR035432

PATIENT
  Age: 34 Year
  Sex: Male

DRUGS (2)
  1. FENTANYL [Suspect]
     Active Substance: FENTANYL\FENTANYL CITRATE
     Indication: Product used for unknown indication
     Dosage: 12 MICROGRAMS/HOUR
     Route: 062
  2. TRAMADOL [Concomitant]
     Active Substance: TRAMADOL\TRAMADOL HYDROCHLORIDE
     Indication: Product used for unknown indication
     Dosage: UNK
     Route: 065

REACTIONS (8)
  - Respiratory depression [Fatal]
  - Hyperglycaemia [Fatal]
  - Hepatitis acute [Fatal]
  - Encephalopathy [Unknown]
  - Liver injury [Unknown]
  - Coma [Unknown]
  - Cholecystitis infective [Unknown]
  - Cardiac disorder [Unknown]
